FAERS Safety Report 7723891-5 (Version None)
Quarter: 2011Q3

REPORT INFORMATION
  Report Type: 
  Country: None (occurrence: None)
  Receive Date: 20110901
  Receipt Date: 20110826
  Transmission Date: 20111222
  Serious: Yes (Hospitalization)
  Sender: FDA-Public Use
  Company Number: DE-B.I. PHARMACEUTICALS,INC./RIDGEFIELD-2011-DE-04868DE

PATIENT
  Sex: Male

DRUGS (5)
  1. PRADAXA [Suspect]
     Indication: CEREBROVASCULAR ACCIDENT
  2. EUTHYROX 200 [Concomitant]
  3. CHEMOTHERAPEUTICS [Concomitant]
     Indication: MONOCLONAL GAMMOPATHY
  4. TORSEMIDE [Concomitant]
  5. ACYCLOVIR [Concomitant]
     Indication: HERPES ZOSTER

REACTIONS (5)
  - LOSS OF CONSCIOUSNESS [None]
  - LIMB DISCOMFORT [None]
  - CYANOSIS [None]
  - POOR QUALITY SLEEP [None]
  - BURNING SENSATION [None]
